FAERS Safety Report 9510385 (Version 2)
Quarter: 2013Q3

REPORT INFORMATION
  Report Type: Spontaneous
  Country: US (occurrence: US)
  Receive Date: 20130909
  Receipt Date: 20130909
  Transmission Date: 20140515
  Serious: No
  Sender: FDA-Public Use
  Company Number: US-BRISTOL-MYERS SQUIBB COMPANY-17427857

PATIENT
  Sex: 0

DRUGS (2)
  1. ABILIFY TABS 2 MG [Suspect]
     Indication: MAJOR DEPRESSION
  2. ZOLOFT [Concomitant]

REACTIONS (3)
  - Depression [Unknown]
  - Drug withdrawal syndrome [Unknown]
  - Agitation [Unknown]
